FAERS Safety Report 11752463 (Version 3)
Quarter: 2015Q4

REPORT INFORMATION
  Report Type: Spontaneous
  Country: DE (occurrence: DE)
  Receive Date: 20151118
  Receipt Date: 20151218
  Transmission Date: 20160304
  Serious: Yes (Other)
  Sender: FDA-Public Use
  Company Number: DE-ROCHE-1661848

PATIENT
  Sex: Male

DRUGS (2)
  1. DAPSON [Suspect]
     Active Substance: DAPSONE
     Indication: PEMPHIGUS
     Dosage: 1-0-0
     Route: 048
     Dates: start: 200811
  2. CELLCEPT [Suspect]
     Active Substance: MYCOPHENOLATE MOFETIL\MYCOPHENOLATE MOFETIL HYDROCHLORIDE
     Indication: PEMPHIGUS
     Route: 065
     Dates: start: 2009

REACTIONS (2)
  - Blood count abnormal [Not Recovered/Not Resolved]
  - Macrocytosis [Unknown]
